FAERS Safety Report 24146270 (Version 1)
Quarter: 2024Q3

REPORT INFORMATION
  Report Type: Report from Study
  Country: US (occurrence: None)
  Receive Date: 20240729
  Receipt Date: 20240729
  Transmission Date: 20241017
  Serious: Yes (Hospitalization, Other)
  Sender: ASTRAZENECA
  Company Number: 2018SE31532

PATIENT
  Age: 52 Year
  Sex: Male

DRUGS (7)
  1. IMFINZI [Suspect]
     Active Substance: DURVALUMAB
     Indication: Pulmonary mass
     Dates: start: 20180302, end: 20180608
  2. OMEPRAZOLE [Suspect]
     Active Substance: OMEPRAZOLE
     Route: 048
  3. AMBIEN [Concomitant]
     Active Substance: ZOLPIDEM TARTRATE
     Dosage: 5 MG
  4. UNSPECIFIED INGREDIENT [Concomitant]
     Active Substance: UNSPECIFIED INGREDIENT
  5. ASPIRIN [Concomitant]
     Active Substance: ASPIRIN
     Dosage: 81.0MG UNKNOWN
  6. FLONASE [Concomitant]
     Active Substance: FLUTICASONE PROPIONATE
     Dates: start: 2012
  7. TYLENOL [Concomitant]
     Active Substance: ACETAMINOPHEN

REACTIONS (89)
  - Retinal detachment [Unknown]
  - Chronic obstructive pulmonary disease [Unknown]
  - Lung neoplasm malignant [Unknown]
  - Mite allergy [Unknown]
  - Transient ischaemic attack [Unknown]
  - Pneumonitis [Unknown]
  - Sciatica [Unknown]
  - Diarrhoea [Unknown]
  - Rash [Recovered/Resolved]
  - Myalgia [Recovering/Resolving]
  - Rash macular [Unknown]
  - Pruritus [Unknown]
  - Somnolence [Unknown]
  - Fatigue [Not Recovered/Not Resolved]
  - Depressed mood [Unknown]
  - Asthenia [Unknown]
  - Malaise [Unknown]
  - Gastrointestinal motility disorder [Unknown]
  - Tendon pain [Recovered/Resolved]
  - Hunger [Not Recovered/Not Resolved]
  - Weight increased [Unknown]
  - Headache [Recovered/Resolved]
  - Abdominal distension [Unknown]
  - Adrenal adenoma [Recovering/Resolving]
  - Skin discolouration [Recovered/Resolved]
  - Abdominal discomfort [Unknown]
  - Agitation [Unknown]
  - Pain [Not Recovered/Not Resolved]
  - Nodule [Recovering/Resolving]
  - Blood pressure increased [Unknown]
  - Quality of life decreased [Unknown]
  - Muscle spasms [Unknown]
  - Decreased appetite [Unknown]
  - Pain in extremity [Unknown]
  - Peripheral swelling [Unknown]
  - Hiatus hernia [Unknown]
  - Asthma [Unknown]
  - Chest pain [Not Recovered/Not Resolved]
  - Oesophageal ulcer [Unknown]
  - PD-L1 protein expression [Unknown]
  - Cataract [Recovered/Resolved]
  - Angina pectoris [Unknown]
  - Cold sweat [Unknown]
  - Paraesthesia oral [Recovered/Resolved]
  - Eye disorder [Unknown]
  - Wheezing [Unknown]
  - Infection [Unknown]
  - Back pain [Unknown]
  - Oropharyngeal pain [Unknown]
  - Disturbance in attention [Unknown]
  - Renal pain [Unknown]
  - Thyroid disorder [Unknown]
  - Arthritis [Unknown]
  - Dry skin [Unknown]
  - Visual impairment [Recovering/Resolving]
  - Eye pruritus [Unknown]
  - Renal impairment [Unknown]
  - Ejection fraction decreased [Unknown]
  - Confusional state [Unknown]
  - Hypersensitivity [Unknown]
  - Chills [Unknown]
  - Nasal congestion [Unknown]
  - Hypotension [Unknown]
  - Dehydration [Unknown]
  - Oral pain [Unknown]
  - Lip pain [Unknown]
  - Dyschezia [Unknown]
  - Memory impairment [Unknown]
  - Sleep disorder [Unknown]
  - Anaemia [Unknown]
  - Red blood cell macrocytes present [Unknown]
  - Weight decreased [Unknown]
  - Migraine [Unknown]
  - Pleurisy [Unknown]
  - Dyspnoea [Recovering/Resolving]
  - Pulmonary pain [Unknown]
  - Odynophagia [Unknown]
  - Pulmonary mass [Unknown]
  - Dysphagia [Recovering/Resolving]
  - Hypersomnia [Unknown]
  - Lung disorder [Unknown]
  - Eye disorder [Unknown]
  - Ear disorder [Unknown]
  - Heart rate irregular [Unknown]
  - Glomerular filtration rate decreased [Unknown]
  - Sinusitis [Unknown]
  - Abdominal pain upper [Unknown]
  - Abdominal pain lower [Unknown]
  - Cough [Recovering/Resolving]

NARRATIVE: CASE EVENT DATE: 20060101
